FAERS Safety Report 12057626 (Version 1)
Quarter: 2016Q1

REPORT INFORMATION
  Report Type: Report from Study
  Country: US (occurrence: US)
  Receive Date: 20160210
  Receipt Date: 20160210
  Transmission Date: 20160526
  Serious: Yes (Other)
  Sender: FDA-Public Use
  Company Number: US-ROCHE-1707446

PATIENT
  Age: 68 Year
  Sex: Female

DRUGS (3)
  1. ERLOTINIB [Suspect]
     Active Substance: ERLOTINIB
     Indication: PANCREATIC CARCINOMA
     Dosage: GIVEN ON DAYS 1-5, 8-12 AND 15-26 OF EACH 28 DAY CYCLE, 28 DAYS?MOST RECENT DOSE PRIOR TO SAE: 26/DE
     Route: 048
     Dates: start: 20061201
  2. GEMCITABINE [Suspect]
     Active Substance: GEMCITABINE\GEMCITABINE HYDROCHLORIDE
     Indication: PANCREATIC CARCINOMA
     Dosage: CYCLE 1: 30 MINUTES ON DAYS 1, 8 AND 15 OF EACH 28 DAY CYCLE, PERSISTENT 28 DAYS
     Route: 042
     Dates: start: 20061201
  3. BEVACIZUMAB [Suspect]
     Active Substance: BEVACIZUMAB
     Indication: PANCREATIC CARCINOMA
     Dosage: CYCLE 1: GIVEN OVER 60-90 MINUTES ON DAY 1AND 15, ?CYCLE 2+: GIVEN OVER 30-90 MINUTES; MULTIPLE 28 D
     Route: 042
     Dates: start: 20061201

REACTIONS (1)
  - Palpitations [Recovered/Resolved]

NARRATIVE: CASE EVENT DATE: 20061229
